FAERS Safety Report 8817163 (Version 1)
Quarter: 2012Q4

REPORT INFORMATION
  Report Type: Spontaneous
  Country: US (occurrence: None)
  Receive Date: 20121003
  Receipt Date: 20121003
  Transmission Date: 20130627
  Serious: No
  Sender: FDA-Public Use
  Company Number: None

PATIENT
  Age: 78 Year
  Sex: Male
  Weight: 113 kg

DRUGS (3)
  1. AMPICILLIN [Suspect]
     Indication: ENTEROCOCCAL BACTEREMIA
     Dosage: 9/20/12 @ 12pm to 9/22@12:20pm
     Route: 042
     Dates: start: 20120920
  2. FUROSEMIDE [Concomitant]
  3. PANTOPRAZOLE [Concomitant]

REACTIONS (3)
  - Rash erythematous [None]
  - Lip swelling [None]
  - Dyspnoea [None]
